FAERS Safety Report 14332895 (Version 2)
Quarter: 2018Q1

REPORT INFORMATION
  Report Type: Spontaneous
  Country: US (occurrence: US)
  Receive Date: 20171228
  Receipt Date: 20180220
  Transmission Date: 20180509
  Serious: Yes (Death, Hospitalization)
  Sender: FDA-Public Use
  Company Number: US-PFIZER INC-2017546055

PATIENT
  Age: 71 Year
  Sex: Female
  Weight: 50 kg

DRUGS (14)
  1. LIPITOR [Concomitant]
     Active Substance: ATORVASTATIN CALCIUM
     Indication: HYPERLIPIDAEMIA
     Dosage: 20 MG, 1X/DAY
     Route: 048
  2. LASIX [Concomitant]
     Active Substance: FUROSEMIDE
     Indication: CARDIAC FAILURE CONGESTIVE
     Dosage: 60 MG, DAILY (2 TABLETS IN THE MORNING AND ONE TABLET IN THE EVENING)
  3. MAGNESIUM OXIDE. [Concomitant]
     Active Substance: MAGNESIUM OXIDE
     Dosage: 400 MG, 2X/DAY
     Route: 048
  4. SEROQUEL [Concomitant]
     Active Substance: QUETIAPINE FUMARATE
     Indication: DEMENTIA
     Dosage: 25 MG, 1X/DAY
     Route: 048
     Dates: start: 20171122
  5. POLYCARBOPHIL CALCIUM [Concomitant]
     Active Substance: CALCIUM POLYCARBOPHIL
     Dosage: DAILY(TAKE 1 TAB BY MOUTH 3 TIMES DAILY (BEFORE MEALS).)
     Route: 048
  6. VITAMIN E [Concomitant]
     Active Substance: .ALPHA.-TOCOPHEROL
     Dosage: 200 IU, DAILY
     Route: 048
  7. FISH OIL OMEGA 3 [Concomitant]
     Active Substance: FISH OIL
     Dosage: DAILY (TAKE 2 CAPS BY MOUTH DAILY)
     Route: 048
  8. VIACTIV [Concomitant]
     Active Substance: CALCIUM\VITAMIN D\VITAMIN K5
     Indication: MINERAL SUPPLEMENTATION
     Dosage: 1 DF, 2X/DAY
     Route: 048
  9. LANOXIN [Concomitant]
     Active Substance: DIGOXIN
     Indication: ATRIAL FIBRILLATION
     Dosage: 125 UG, 1X/DAY
  10. VASOTEC [Concomitant]
     Active Substance: ENALAPRIL MALEATE
     Indication: HYPERTENSION
     Dosage: 5 MG, 2X/DAY
     Route: 048
  11. DIMETHICONE. [Concomitant]
     Active Substance: DIMETHICONE
     Indication: ERYTHEMA
     Route: 061
  12. REVATIO [Suspect]
     Active Substance: SILDENAFIL CITRATE
     Indication: PULMONARY HYPERTENSION
     Dosage: 20 MG, 3X/DAY
     Route: 048
     Dates: start: 20161021
  13. ASCORBIC ACID. [Concomitant]
     Active Substance: ASCORBIC ACID
     Dosage: 500 MG, 1X/DAY
     Route: 048
  14. COREG [Concomitant]
     Active Substance: CARVEDILOL
     Indication: HYPERTENSION
     Dosage: 6.25 MG, 2X/DAY
     Route: 048

REACTIONS (2)
  - Encephalopathy [Unknown]
  - Dementia [Fatal]

NARRATIVE: CASE EVENT DATE: 201712
